FAERS Safety Report 23259878 (Version 2)
Quarter: 2023Q4

REPORT INFORMATION
  Report Type: Spontaneous
  Country: US (occurrence: US)
  Receive Date: 20231204
  Receipt Date: 20231211
  Transmission Date: 20240110
  Serious: No
  Sender: FDA-Public Use
  Company Number: US-PFIZER INC-202300393122

PATIENT
  Age: 48 Year
  Sex: Female
  Weight: 73.48 kg

DRUGS (1)
  1. ZAVZPRET [Suspect]
     Active Substance: ZAVEGEPANT HYDROCHLORIDE
     Indication: Migraine
     Dosage: 10 MG (ONE SPRAY EVERY 24 HOURS)
     Route: 045
     Dates: start: 202309, end: 202310

REACTIONS (5)
  - Dysgeusia [Unknown]
  - Nausea [Unknown]
  - Vomiting [Unknown]
  - Sinus disorder [Unknown]
  - Upper-airway cough syndrome [Unknown]
